FAERS Safety Report 21885498 (Version 1)
Quarter: 2023Q1

REPORT INFORMATION
  Report Type: Spontaneous
  Country: GB (occurrence: GB)
  Receive Date: 20230119
  Receipt Date: 20230119
  Transmission Date: 20230418
  Serious: Yes (Hospitalization)
  Sender: FDA-Public Use
  Company Number: GB-AMGEN-GBRSP2023004400

PATIENT
  Age: 52 Year
  Sex: Male
  Weight: 121 kg

DRUGS (14)
  1. ADALIMUMAB [Suspect]
     Active Substance: ADALIMUMAB
     Indication: Psoriasis
     Dosage: 40 MILLIGRAM, Q2WK
     Route: 065
     Dates: start: 20190407
  2. BISOPROLOL [Concomitant]
     Active Substance: BISOPROLOL
     Dosage: UNK
     Dates: start: 20170419, end: 20221220
  3. DOXAZOSIN [Concomitant]
     Active Substance: DOXAZOSIN MESYLATE
     Dosage: UNK
     Dates: start: 20180501
  4. CANDESARTAN [Concomitant]
     Active Substance: CANDESARTAN
     Dosage: UNK
     Dates: start: 20190429
  5. RIVAROXABAN [Concomitant]
     Active Substance: RIVAROXABAN
     Dosage: UNK
     Dates: start: 20190429
  6. BENDROFLUMETHIAZIDE [Concomitant]
     Active Substance: BENDROFLUMETHIAZIDE
     Dosage: UNK
     Dates: start: 20210611
  7. FELODIPINE [Concomitant]
     Active Substance: FELODIPINE
     Dosage: UNK
     Dates: start: 20210625, end: 20221220
  8. DILTIAZEM [Concomitant]
     Active Substance: DILTIAZEM
     Dosage: UNK
     Dates: start: 20210817
  9. COVID-19 vaccine [Concomitant]
     Dosage: UNK
     Dates: start: 20211025, end: 20211025
  10. COVID-19 vaccine [Concomitant]
     Dosage: UNK
     Dates: start: 20220504, end: 20220504
  11. COVID-19 vaccine [Concomitant]
     Dosage: UNK
     Dates: start: 20220920, end: 20220920
  12. AMOXICILLIN [Concomitant]
     Active Substance: AMOXICILLIN
     Dosage: UNK
     Dates: start: 20220909, end: 20220916
  13. TRIMETHOPRIM [Concomitant]
     Active Substance: TRIMETHOPRIM
     Dosage: UNK
     Dates: start: 20220912, end: 20220920
  14. INFLUENZA VIRUS VACCINE [Concomitant]
     Active Substance: INFLUENZA VIRUS VACCINE
     Dosage: UNK
     Dates: start: 20220920, end: 20220920

REACTIONS (2)
  - Bradycardia [Recovered/Resolved]
  - Confusional state [Recovered/Resolved]

NARRATIVE: CASE EVENT DATE: 20220821
